FAERS Safety Report 4355181-5 (Version None)
Quarter: 2004Q2

REPORT INFORMATION
  Report Type: 
  Country: None (occurrence: None)
  Receive Date: 20040504
  Receipt Date: 20040427
  Transmission Date: 20050107
  Serious: Yes (Other)
  Sender: FDA-Public Use
  Company Number: 2004210600GB

PATIENT
  Sex: 0

DRUGS (1)
  1. SULFASALAZINE [Suspect]

REACTIONS (2)
  - ANAPHYLACTIC SHOCK [None]
  - STEVENS-JOHNSON SYNDROME [None]
